FAERS Safety Report 6655113-0 (Version None)
Quarter: 2010Q1

REPORT INFORMATION
  Report Type: 
  Country: None (occurrence: None)
  Receive Date: 20100329
  Receipt Date: 20100318
  Transmission Date: 20100710
  Serious: Yes (Hospitalization)
  Sender: FDA-Public Use
  Company Number: DK-JNJFOC-20100200878

PATIENT
  Sex: Female

DRUGS (3)
  1. REMICADE [Suspect]
     Indication: ANKYLOSING SPONDYLITIS
     Dosage: WEEK 0, 2, 6, AND 8
     Route: 042
  2. REMICADE [Suspect]
     Route: 042
  3. REMICADE [Suspect]
     Dosage: WEEK 0, 2,6,AND 8
     Route: 042

REACTIONS (2)
  - CHEST X-RAY ABNORMAL [None]
  - SERUM SICKNESS [None]
